FAERS Safety Report 20462727 (Version 1)
Quarter: 2022Q1

REPORT INFORMATION
  Report Type: Spontaneous
  Country: US (occurrence: US)
  Receive Date: 20220211
  Receipt Date: 20220211
  Transmission Date: 20220423
  Serious: No
  Sender: FDA-Public Use
  Company Number: US-PERRIGO-21US033415

PATIENT
  Age: 35 Year
  Sex: Male

DRUGS (4)
  1. KETOCONAZOLE [Suspect]
     Active Substance: KETOCONAZOLE
     Indication: Seborrhoeic dermatitis
     Dosage: 1 APPLICATION, 2 TO 3 TIMES WEEKLY
     Route: 061
     Dates: start: 202002
  2. KETOCONAZOLE [Concomitant]
     Active Substance: KETOCONAZOLE
     Indication: Seborrhoeic dermatitis
     Dosage: 2% CREAM, QOD, QD, OR BID
     Route: 061
     Dates: start: 202002
  3. EUCRISA [Concomitant]
     Active Substance: CRISABOROLE
     Indication: Seborrhoeic dermatitis
     Dosage: 2% OINTMENT, QD OR 2 TO 3 TIMES WEEKLY
     Route: 061
     Dates: start: 202002
  4. HEAD AND SHOULDERS [Concomitant]
     Active Substance: PYRITHIONE ZINC
     Indication: Seborrhoeic dermatitis
     Dosage: 1 APPLICATION, QOD
     Route: 061
     Dates: start: 202005

REACTIONS (1)
  - Off label use [Unknown]

NARRATIVE: CASE EVENT DATE: 20200201
